FAERS Safety Report 9523148 (Version 2)
Quarter: 2013Q3

REPORT INFORMATION
  Report Type: Spontaneous
  Country: US (occurrence: US)
  Receive Date: 20130913
  Receipt Date: 20130913
  Transmission Date: 20140515
  Serious: Yes (Other)
  Sender: FDA-Public Use
  Company Number: US-JNJFOC-20130505857

PATIENT
  Age: 50 Year
  Sex: Female

DRUGS (21)
  1. LEVAQUIN [Suspect]
     Indication: PNEUMONIA
     Route: 048
     Dates: start: 200601
  2. LEVAQUIN [Suspect]
     Indication: PLEURAL EFFUSION
     Route: 048
     Dates: start: 200601
  3. LEVAQUIN [Suspect]
     Indication: CELLULITIS
     Route: 048
     Dates: start: 200601
  4. LEVAQUIN [Suspect]
     Indication: FLUID OVERLOAD
     Route: 048
     Dates: start: 200601
  5. LEVAQUIN [Suspect]
     Indication: HYPERKALAEMIA
     Route: 048
     Dates: start: 200601
  6. LEVAQUIN [Suspect]
     Indication: FLUID OVERLOAD
     Route: 042
  7. LEVAQUIN [Suspect]
     Indication: HYPERKALAEMIA
     Route: 042
  8. LEVAQUIN [Suspect]
     Indication: PNEUMONIA
     Route: 042
  9. LEVAQUIN [Suspect]
     Indication: PLEURAL EFFUSION
     Route: 042
  10. LEVAQUIN [Suspect]
     Indication: POST PROCEDURAL INFECTION
     Route: 042
  11. PREDNISONE [Suspect]
     Indication: PRODUCT USED FOR UNKNOWN INDICATION
     Route: 065
  12. METHYLPREDNISOLONE [Suspect]
     Indication: PRODUCT USED FOR UNKNOWN INDICATION
     Route: 065
  13. CIPROFLOXACIN [Suspect]
     Indication: PRODUCT USED FOR UNKNOWN INDICATION
     Route: 065
  14. ASPIRIN [Concomitant]
     Indication: CARDIAC DISORDER
     Route: 065
  15. CELLCEPT [Concomitant]
     Indication: KIDNEY TRANSPLANT REJECTION
     Route: 065
  16. WARFARIN [Concomitant]
     Indication: ANTICOAGULANT THERAPY
     Route: 065
  17. INSULIN [Concomitant]
     Indication: DIABETES MELLITUS
     Route: 065
  18. NIFEDICAL [Concomitant]
     Indication: BLOOD PRESSURE
     Route: 065
  19. CARAFATE [Concomitant]
     Indication: GASTRITIS
     Route: 065
  20. HUMALOG [Concomitant]
     Indication: GASTRITIS
     Route: 065
  21. PROGRAF [Concomitant]
     Indication: KIDNEY TRANSPLANT REJECTION
     Route: 065

REACTIONS (4)
  - Tendon rupture [Unknown]
  - Plantar fasciitis [Recovering/Resolving]
  - Tendonitis [Unknown]
  - Plantar fascial fibromatosis [Unknown]
